FAERS Safety Report 9055448 (Version 3)
Quarter: 2015Q2

REPORT INFORMATION
  Report Type: Spontaneous
  Country: IT (occurrence: IT)
  Receive Date: 20130206
  Receipt Date: 20150406
  Transmission Date: 20150821
  Serious: Yes (Hospitalization)
  Sender: FDA-Public Use
  Company Number: IT-PFIZER INC-2013048232

PATIENT
  Age: 80 Year
  Sex: Female

DRUGS (9)
  1. PRAZENE [Suspect]
     Active Substance: PRAZEPAM
     Indication: PAIN
     Dosage: 80 MG TOTAL
     Route: 048
     Dates: start: 20130117, end: 20130117
  2. CO-EFFERALGAN [Suspect]
     Active Substance: ACETAMINOPHEN\CODEINE PHOSPHATE
     Indication: PAIN
     Dosage: 4 UNITS DOSE
     Route: 048
     Dates: start: 20130117, end: 20130117
  3. PARIET [Concomitant]
     Active Substance: RABEPRAZOLE SODIUM
  4. CARDURA [Concomitant]
     Active Substance: DOXAZOSIN MESYLATE
  5. ADALAT [Concomitant]
     Active Substance: NIFEDIPINE
  6. LASIX [Concomitant]
     Active Substance: FUROSEMIDE
  7. ENAPREN [Concomitant]
     Active Substance: ENALAPRIL MALEATE
     Indication: HYPERTENSION
  8. LYRICA [Suspect]
     Active Substance: PREGABALIN
     Indication: PAIN
     Dosage: 600MG TOTAL
     Route: 048
     Dates: start: 20130117, end: 20130117
  9. CARDIOASPIRIN [Concomitant]
     Active Substance: ASPIRIN

REACTIONS (4)
  - Long QT syndrome [Recovered/Resolved]
  - Respiratory failure [Recovered/Resolved]
  - Myocardial necrosis marker increased [Recovered/Resolved]
  - Coma [Recovered/Resolved]

NARRATIVE: CASE EVENT DATE: 20130117
